FAERS Safety Report 15475949 (Version 1)
Quarter: 2018Q4

REPORT INFORMATION
  Report Type: Spontaneous
  Country: PL (occurrence: PL)
  Receive Date: 20181009
  Receipt Date: 20181009
  Transmission Date: 20190205
  Serious: Yes (Other)
  Sender: FDA-Public Use
  Company Number: PHHY2018PL117302

PATIENT
  Age: 71 Year
  Sex: Female

DRUGS (7)
  1. CAPECITABINE. [Suspect]
     Active Substance: CAPECITABINE
     Indication: COLON CANCER
     Dosage: 1000 MG/M2, UNK  ON DAYS 1-14
     Route: 048
  2. AVASTIN [Suspect]
     Active Substance: BEVACIZUMAB
     Indication: COLON CANCER
     Dosage: 5 MG/KG, UNK
     Route: 042
  3. FLUOROURACIL. [Suspect]
     Active Substance: FLUOROURACIL
     Indication: PRODUCT USED FOR UNKNOWN INDICATION
     Dosage: 600 MG/M2, UNK (OVER 22 HOURS ON DAYS 1 AND 2)
     Route: 042
  4. IRINOTECAN [Suspect]
     Active Substance: IRINOTECAN
     Indication: COLON CANCER
     Dosage: 180 MG/M2, UNK ON DAY 1
     Route: 065
  5. FLUOROURACIL. [Suspect]
     Active Substance: FLUOROURACIL
     Dosage: 400 MG/M2, UNK
     Route: 040
  6. OXALIPLATIN. [Suspect]
     Active Substance: OXALIPLATIN
     Indication: COLON CANCER
     Dosage: 130 MG/M2, UNK ON DAY 1
     Route: 042
  7. LEVOLEUCOVORIN. [Suspect]
     Active Substance: LEVOLEUCOVORIN
     Indication: COLON CANCER
     Dosage: 100 MG/M2, UNK ON DAY 1 AND 2
     Route: 065

REACTIONS (11)
  - Leukocytosis [Unknown]
  - Vertebral lesion [Unknown]
  - Pulmonary mass [Unknown]
  - Polyneuropathy [Unknown]
  - Monocytosis [Unknown]
  - Metastases to liver [Unknown]
  - Platelet count abnormal [Unknown]
  - Spinal osteoarthritis [Unknown]
  - Neutrophilia [Unknown]
  - Hepatomegaly [Unknown]
  - Diarrhoea [Unknown]
